FAERS Safety Report 4862014-7 (Version None)
Quarter: 2005Q4

REPORT INFORMATION
  Report Type: 
  Country: None (occurrence: None)
  Receive Date: 20051129
  Receipt Date: 20050720
  Transmission Date: 20060501
  Serious: Yes (Other)
  Sender: FDA-Public Use
  Company Number: 310104K05USA

PATIENT
  Age: 45 Year
  Sex: Female

DRUGS (5)
  1. GONAL-F [Suspect]
     Indication: INFERTILITY
     Dosage: 75 IU, 2 IN 1 DAYS
     Dates: start: 20050630
  2. OVIDREL [Suspect]
     Indication: INFERTILITY FEMALE
     Dosage: 500 MCG, 2 IN 1 DAYS
     Dates: start: 20050710
  3. REPRONEX [Suspect]
     Dosage: 150 IU, 2 IN 1 DAYS
  4. GANIRELIX ACETATE INJECTION [Suspect]
  5. HCG (CHORIONIC GONADOTROPHIN) [Suspect]
     Dosage: 10000 IU
     Dates: start: 20050711

REACTIONS (5)
  - ABDOMINAL PAIN [None]
  - GASTRIC DILATATION [None]
  - NAUSEA [None]
  - OVARIAN HYPERSTIMULATION SYNDROME [None]
  - POLLAKIURIA [None]
